FAERS Safety Report 8294771-4 (Version None)
Quarter: 2012Q2

REPORT INFORMATION
  Report Type: 
  Country: None (occurrence: None)
  Receive Date: 20120418
  Receipt Date: 20120412
  Transmission Date: 20120825
  Serious: Yes (Other)
  Sender: FDA-Public Use
  Company Number: JP-PFIZER INC-2012089837

PATIENT
  Age: 73 Year
  Sex: Female

DRUGS (2)
  1. DEPAS [Concomitant]
     Dosage: UNK
  2. LYRICA [Suspect]
     Dosage: 75 MG, 1X/DAY
     Route: 048
     Dates: start: 20120410, end: 20120410

REACTIONS (3)
  - ACCIDENT [None]
  - BEDRIDDEN [None]
  - DIZZINESS [None]
